FAERS Safety Report 10530028 (Version 2)
Quarter: 2014Q4

REPORT INFORMATION
  Report Type: Spontaneous
  Country: IT (occurrence: IT)
  Receive Date: 20141021
  Receipt Date: 20141023
  Transmission Date: 20150528
  Serious: Yes (Hospitalization)
  Sender: FDA-Public Use
  Company Number: IT-TEVA-515262ISR

PATIENT
  Age: 38 Year
  Sex: Male

DRUGS (2)
  1. NIMESULIDE [Suspect]
     Active Substance: NIMESULIDE
     Indication: TOOTHACHE
     Dosage: 1 DOSAGE FORMS DAILY; GRANULES FOR ORAL SUSPENSION. 1 DF DAILY
     Route: 048
     Dates: start: 20140922, end: 20140926
  2. AMOXICILLIN + CLAVULANIC ACID [Suspect]
     Active Substance: AMOXICILLIN\CLAVULANIC ACID
     Indication: DENTAL CARE
     Dosage: 2 DOSAGE FORMS DAILY; 2 DF DAILY
     Dates: start: 20140922, end: 20140926

REACTIONS (1)
  - Rash maculo-papular [Recovering/Resolving]

NARRATIVE: CASE EVENT DATE: 20140928
